FAERS Safety Report 7709613-2 (Version None)
Quarter: 2011Q3

REPORT INFORMATION
  Report Type: 
  Country: None (occurrence: None)
  Receive Date: 20110825
  Receipt Date: 20110810
  Transmission Date: 20111222
  Serious: Yes (Hospitalization, Disabling)
  Sender: FDA-Public Use
  Company Number: US-GLAXOSMITHKLINE-A0873779A

PATIENT
  Age: 47 Year
  Sex: Female
  Weight: 69.5 kg

DRUGS (9)
  1. HYDROCHLOROTHIAZIDE [Concomitant]
  2. NORVASC [Concomitant]
  3. METOPROLOL [Concomitant]
  4. METFORMIN HCL [Concomitant]
  5. LESCOL [Concomitant]
  6. AVANDIA [Suspect]
     Indication: DIABETES MELLITUS
     Route: 048
     Dates: start: 20020409, end: 20040101
  7. GLUCOTROL [Concomitant]
     Dates: end: 20030101
  8. INSULIN [Concomitant]
     Dates: start: 20020101
  9. LISINOPRIL [Concomitant]

REACTIONS (2)
  - MYOCARDIAL INFARCTION [None]
  - CORONARY ARTERY DISEASE [None]
